FAERS Safety Report 8403535-X (Version None)
Quarter: 2012Q2

REPORT INFORMATION
  Report Type: 
  Country: None (occurrence: None)
  Receive Date: 20120601
  Receipt Date: 20120531
  Transmission Date: 20120825
  Serious: Yes (Death)
  Sender: FDA-Public Use
  Company Number: JP-B.I. PHARMACEUTICALS,INC./RIDGEFIELD-2012-BP-11226NB

PATIENT
  Sex: Female
  Weight: 57 kg

DRUGS (2)
  1. PRADAXA [Suspect]
     Indication: ATRIAL FIBRILLATION
     Dosage: 220 MG
     Route: 048
     Dates: start: 20120407, end: 20120510
  2. ASPIRIN [Concomitant]
     Dosage: 100 MG
     Route: 065
     Dates: start: 20050701, end: 20120406

REACTIONS (1)
  - CEREBRAL HAEMORRHAGE [None]
